FAERS Safety Report 18219153 (Version 3)
Quarter: 2020Q3

REPORT INFORMATION
  Report Type: Spontaneous
  Country: IT (occurrence: IT)
  Receive Date: 20200901
  Receipt Date: 20200907
  Transmission Date: 20201103
  Serious: Yes (Other)
  Sender: FDA-Public Use
  Company Number: NVSC2020IT239444

PATIENT
  Age: 56 Year
  Sex: Male

DRUGS (2)
  1. ADALIMUMAB [Suspect]
     Active Substance: ADALIMUMAB
     Indication: RELAPSING-REMITTING MULTIPLE SCLEROSIS
  2. ADALIMUMAB [Suspect]
     Active Substance: ADALIMUMAB
     Indication: ANKYLOSING SPONDYLITIS
     Dosage: UNK
     Route: 065

REACTIONS (5)
  - Relapsing-remitting multiple sclerosis [Recovering/Resolving]
  - Multiple sclerosis [Unknown]
  - Demyelination [Recovering/Resolving]
  - Condition aggravated [Recovering/Resolving]
  - Nervous system disorder [Unknown]
